FAERS Safety Report 10989173 (Version 2)
Quarter: 2016Q4

REPORT INFORMATION
  Report Type: Spontaneous
  Country: US (occurrence: US)
  Receive Date: 20150406
  Receipt Date: 20161231
  Transmission Date: 20170206
  Serious: Yes (Other)
  Sender: FDA-Public Use
  Company Number: US-AUROBINDO-AUR-APU-2015-02671

PATIENT
  Sex: Male

DRUGS (1)
  1. CEFPODOXIME PROXETIL TABLETS USP 100MG [Suspect]
     Active Substance: CEFPODOXIME PROXETIL
     Indication: CYSTITIS
     Dosage: 100 MG, UNK
     Route: 065
     Dates: start: 20150323

REACTIONS (10)
  - Insomnia [Unknown]
  - Product substitution issue [Unknown]
  - Abdominal discomfort [Unknown]
  - Feeding disorder [Unknown]
  - Abdominal pain upper [Unknown]
  - Constipation [Unknown]
  - Headache [Unknown]
  - Malaise [Unknown]
  - Abdominal distension [Unknown]
  - Nausea [Unknown]
